FAERS Safety Report 7267284-6 (Version None)
Quarter: 2011Q1

REPORT INFORMATION
  Report Type: 
  Country: None (occurrence: None)
  Receive Date: 20110201
  Receipt Date: 20110128
  Transmission Date: 20110831
  Serious: Yes (Other)
  Sender: FDA-Public Use
  Company Number: US-SANOFI-AVENTIS-2011SA005987

PATIENT
  Age: 74 Year
  Sex: Female

DRUGS (3)
  1. LEVOTHYROXINE SODIUM [Concomitant]
     Route: 048
  2. ALLEGRA [Concomitant]
     Route: 048
  3. RILUTEK [Suspect]
     Indication: AMYOTROPHIC LATERAL SCLEROSIS
     Route: 048
     Dates: start: 20110106, end: 20110125

REACTIONS (11)
  - DYSPNOEA [None]
  - TONGUE COATED [None]
  - PANIC ATTACK [None]
  - APHAGIA [None]
  - LIP DRY [None]
  - COUGH [None]
  - INCREASED UPPER AIRWAY SECRETION [None]
  - WEIGHT DECREASED [None]
  - INSOMNIA [None]
  - SPEECH DISORDER [None]
  - PARAESTHESIA ORAL [None]
